FAERS Safety Report 22208581 (Version 1)
Quarter: 2023Q2

REPORT INFORMATION
  Report Type: Spontaneous
  Country: US (occurrence: US)
  Receive Date: 20230413
  Receipt Date: 20230413
  Transmission Date: 20230721
  Serious: Yes (Other)
  Sender: FDA-Public Use
  Company Number: US-JNJFOC-20190900883

PATIENT

DRUGS (1)
  1. IMODIUM [Suspect]
     Active Substance: LOPERAMIDE HYDROCHLORIDE
     Indication: Product used for unknown indication
     Dosage: %FREQUENCY%
     Route: 048

REACTIONS (4)
  - Choking [Unknown]
  - Product size issue [Unknown]
  - Product formulation issue [Unknown]
  - Dysphagia [Unknown]
